FAERS Safety Report 13090375 (Version 1)
Quarter: 2017Q1

REPORT INFORMATION
  Report Type: Spontaneous
  Country: US (occurrence: US)
  Receive Date: 20170105
  Receipt Date: 20170105
  Transmission Date: 20170428
  Serious: No
  Sender: FDA-Public Use
  Company Number: US-ENDO PHARMACEUTICALS INC.-2016-002818

PATIENT
  Sex: Male
  Weight: 88.53 kg

DRUGS (2)
  1. AMLODIPINE BESYLATE TABLETS 10MG [Concomitant]
     Active Substance: AMLODIPINE BESYLATE
     Indication: HYPERTENSION
     Route: 048
  2. TESTOSTERONE GEL [Suspect]
     Active Substance: TESTOSTERONE
     Indication: BLOOD TESTOSTERONE DECREASED
     Route: 061
     Dates: start: 2016, end: 2016

REACTIONS (4)
  - Product odour abnormal [Unknown]
  - Blood pressure increased [Not Recovered/Not Resolved]
  - Medication residue present [Not Recovered/Not Resolved]
  - Product adhesion issue [Unknown]
